FAERS Safety Report 25806190 (Version 1)
Quarter: 2025Q3

REPORT INFORMATION
  Report Type: Spontaneous
  Country: US (occurrence: US)
  Receive Date: 20250916
  Receipt Date: 20250916
  Transmission Date: 20251021
  Serious: Yes (Hospitalization)
  Sender: NOVITIUM PHARMA
  Company Number: US-NOVITIUMPHARMA-2025USNVP02296

PATIENT
  Age: 22 Year
  Sex: Male

DRUGS (11)
  1. PREDNISONE [Suspect]
     Active Substance: PREDNISONE
     Indication: Epstein-Barr virus associated lymphoma
  2. CYCLOPHOSPHAMIDE [Concomitant]
     Active Substance: CYCLOPHOSPHAMIDE
     Indication: Epstein-Barr virus associated lymphoma
  3. DOXORUBICIN [Concomitant]
     Active Substance: DOXORUBICIN
     Indication: Epstein-Barr virus associated lymphoma
  4. VINCRISTINE [Concomitant]
     Active Substance: VINCRISTINE
     Indication: Epstein-Barr virus associated lymphoma
  5. ETOPOSIDE [Concomitant]
     Active Substance: ETOPOSIDE
     Indication: Epstein-Barr virus associated lymphoma
  6. METHOTREXATE [Concomitant]
     Active Substance: METHOTREXATE
     Indication: Epstein-Barr virus associated lymphoma
  7. CYTARABINE [Concomitant]
     Active Substance: CYTARABINE
     Indication: Epstein-Barr virus associated lymphoma
  8. THIOTEPA [Concomitant]
     Active Substance: THIOTEPA
     Indication: Epstein-Barr virus associated lymphoma
  9. RITUXIMAB [Concomitant]
     Active Substance: RITUXIMAB
     Indication: Epstein-Barr virus associated lymphoma
  10. IFOSFAMIDE [Concomitant]
     Active Substance: IFOSFAMIDE
     Indication: Epstein-Barr virus associated lymphoma
  11. CARBOPLATIN [Concomitant]
     Active Substance: CARBOPLATIN
     Indication: Epstein-Barr virus associated lymphoma

REACTIONS (3)
  - Mental status changes [Unknown]
  - Pyrexia [Unknown]
  - Drug ineffective [Unknown]
